FAERS Safety Report 26216458 (Version 1)
Quarter: 2025Q4

REPORT INFORMATION
  Report Type: Spontaneous
  Country: CA (occurrence: CA)
  Receive Date: 20251231
  Receipt Date: 20251231
  Transmission Date: 20260119
  Serious: Yes (Other)
  Sender: Vantive US Healthcare
  Company Number: CA-VANTIVE-2025VAN005923

PATIENT
  Sex: Female

DRUGS (1)
  1. ACID CONCENTRATE D [Suspect]
     Active Substance: ACETIC ACID\CALCIUM CHLORIDE\DEXTROSE\MAGNESIUM CHLORIDE\POTASSIUM CHLORIDE\SODIUM CHLORIDE
     Dosage: UNK

REACTIONS (2)
  - Diabetes mellitus [Unknown]
  - Dialysis hypotension [Unknown]
